FAERS Safety Report 25612510 (Version 1)
Quarter: 2025Q3

REPORT INFORMATION
  Report Type: Spontaneous
  Country: US (occurrence: None)
  Receive Date: 20250726
  Receipt Date: 20250726
  Transmission Date: 20251020
  Serious: Yes (Hospitalization)
  Sender: FDA-CTU
  Company Number: None

PATIENT
  Age: 47 Year
  Sex: Female
  Weight: 42.9 kg

DRUGS (2)
  1. FLUOROURACIL [Suspect]
     Active Substance: FLUOROURACIL
  2. IRINOTECAN (CPT-11. Camptosar) [Concomitant]

REACTIONS (8)
  - Large intestinal obstruction [None]
  - Intestinal mass [None]
  - Colitis [None]
  - Escherichia bacteraemia [None]
  - Streptococcal bacteraemia [None]
  - Shock [None]
  - Anaemia [None]
  - Cachexia [None]

NARRATIVE: CASE EVENT DATE: 20250618
